FAERS Safety Report 18557417 (Version 1)
Quarter: 2020Q4

REPORT INFORMATION
  Report Type: Spontaneous
  Country: PL (occurrence: PL)
  Receive Date: 20201129
  Receipt Date: 20201129
  Transmission Date: 20210114
  Serious: Yes (Other)
  Sender: FDA-Public Use
  Company Number: PL-ROCHE-2722608

PATIENT
  Sex: Female
  Weight: 95 kg

DRUGS (1)
  1. TOCILIZUMAB. [Suspect]
     Active Substance: TOCILIZUMAB
     Indication: COVID-19
     Route: 042
     Dates: start: 20201103

REACTIONS (3)
  - Off label use [Unknown]
  - Intentional product use issue [Unknown]
  - Respiratory failure [Unknown]
